FAERS Safety Report 14907335 (Version 6)
Quarter: 2018Q3

REPORT INFORMATION
  Report Type: Spontaneous
  Country: JP (occurrence: JP)
  Receive Date: 20180517
  Receipt Date: 20180816
  Transmission Date: 20181010
  Serious: Yes (Hospitalization, Other)
  Sender: FDA-Public Use
  Company Number: JP-BRISTOL-MYERS SQUIBB COMPANY-BMS-2018-029967

PATIENT
  Age: 33 Year
  Sex: Male

DRUGS (2)
  1. OPDIVO [Suspect]
     Active Substance: NIVOLUMAB
     Indication: HEAD AND NECK CANCER
     Dosage: 3 MG/KG, UNK
     Route: 041
     Dates: start: 20170904, end: 20180424
  2. TRAMCET [Suspect]
     Active Substance: ACETAMINOPHEN\TRAMADOL
     Indication: MUSCULOSKELETAL PAIN
     Dosage: UNK
     Route: 065
     Dates: start: 20180325

REACTIONS (12)
  - Vision blurred [Recovered/Resolved]
  - Musculoskeletal pain [Not Recovered/Not Resolved]
  - Headache [Not Recovered/Not Resolved]
  - Vocal cord paralysis [Not Recovered/Not Resolved]
  - Eyelid ptosis [Recovering/Resolving]
  - Diplopia [Recovered/Resolved]
  - Malaise [Not Recovered/Not Resolved]
  - Pyrexia [Not Recovered/Not Resolved]
  - Hypoaesthesia oral [Unknown]
  - Cerebral infarction [Not Recovered/Not Resolved]
  - Vomiting [Recovering/Resolving]
  - Myositis [Unknown]

NARRATIVE: CASE EVENT DATE: 20171127
